FAERS Safety Report 8373888-X (Version None)
Quarter: 2012Q2

REPORT INFORMATION
  Report Type: 
  Country: None (occurrence: None)
  Receive Date: 20120517
  Receipt Date: 20120510
  Transmission Date: 20120825
  Serious: Yes (Hospitalization, Other)
  Sender: FDA-Public Use
  Company Number: ABR_00457_2012

PATIENT
  Sex: Male

DRUGS (7)
  1. THEOPHYLLINE [Suspect]
     Indication: PRODUCT USED FOR UNKNOWN INDICATION
     Dosage: DF
  2. SITAGLIPTIN PHOSPHATE MONOHYDRATE [Concomitant]
  3. TELMISARTAN AND HYDROCHLOROTHIAZIDE [Concomitant]
  4. ZOLPIDEM TARTRATE [Concomitant]
  5. ERYTHROCIN [Suspect]
     Indication: PRODUCT USED FOR UNKNOWN INDICATION
     Dosage: DF
  6. RABEPRAZOLE SODIUM [Concomitant]
  7. ACETAMINOPHEN [Concomitant]

REACTIONS (4)
  - INFECTION [None]
  - TACHYCARDIA [None]
  - DYSPNOEA [None]
  - ARRHYTHMIA [None]
